FAERS Safety Report 8286583-2 (Version None)
Quarter: 2012Q2

REPORT INFORMATION
  Report Type: 
  Country: None (occurrence: None)
  Receive Date: 20120416
  Receipt Date: 20120409
  Transmission Date: 20120825
  Serious: Yes (Hospitalization)
  Sender: FDA-Public Use
  Company Number: US-BAYER-2012-011430

PATIENT
  Age: 25 Year
  Sex: Female
  Weight: 71.655 kg

DRUGS (10)
  1. YAZ [Suspect]
     Dosage: UNK
     Dates: start: 20070901, end: 20100401
  2. NSAID'S [Concomitant]
  3. GEODON [Concomitant]
     Dosage: UNK
     Dates: start: 20110101
  4. WELLBUTRIN [Concomitant]
     Dosage: UNK
     Dates: start: 20070101
  5. MAXALT [Concomitant]
     Dosage: UNK
     Dates: start: 20080101
  6. METOPROLOL TARTRATE [Concomitant]
     Dosage: UNK
     Dates: start: 20081201, end: 20100701
  7. TREXIMET [Concomitant]
     Dosage: UNK
     Dates: start: 20080101
  8. BUPROPION HCL [Concomitant]
     Dosage: UNK
     Dates: start: 20070101
  9. GEODON [Concomitant]
     Dosage: UNK
     Dates: start: 20080101, end: 20090101
  10. RISPERIDONE [Concomitant]
     Dosage: UNK
     Dates: start: 20090101, end: 20110101

REACTIONS (2)
  - CHOLELITHIASIS [None]
  - PAIN [None]
